FAERS Safety Report 7002348-3 (Version None)
Quarter: 2010Q3

REPORT INFORMATION
  Report Type: 
  Country: None (occurrence: None)
  Receive Date: 20100920
  Receipt Date: 20090922
  Transmission Date: 20110219
  Serious: No
  Sender: FDA-Public Use
  Company Number: US-ASTRAZENECA-2009UW13712

PATIENT
  Age: 57 Year
  Sex: Female
  Weight: 244.9 kg

DRUGS (8)
  1. SEROQUEL [Suspect]
     Indication: SLEEP DISORDER
     Dosage: 100 MG - 200 MG
     Route: 048
     Dates: start: 19990101
  2. SEROQUEL [Suspect]
     Indication: DEPRESSION
     Dosage: 100 MG - 200 MG
     Route: 048
     Dates: start: 19990101
  3. ZOLOFT [Concomitant]
     Dates: start: 19940101, end: 20040101
  4. PAXIL [Concomitant]
     Dates: start: 19940101, end: 20040101
  5. WELLBUTRIN [Concomitant]
     Dates: start: 19940101, end: 20040101
  6. TRAZODONE HCL [Concomitant]
     Dates: start: 19940101, end: 20040101
  7. CLOZARIL [Concomitant]
     Dates: start: 19960101
  8. HALDOL [Concomitant]
     Dates: start: 19970101

REACTIONS (3)
  - BLOOD TRIGLYCERIDES INCREASED [None]
  - JOINT SPRAIN [None]
  - TYPE 2 DIABETES MELLITUS [None]
